FAERS Safety Report 6608730-8 (Version None)
Quarter: 2010Q1

REPORT INFORMATION
  Report Type: 
  Country: None (occurrence: None)
  Receive Date: 20100301
  Receipt Date: 20100223
  Transmission Date: 20100710
  Serious: Yes (Death, Life-Threatening, Other)
  Sender: FDA-Public Use
  Company Number: PHHY2010DE10462

PATIENT
  Age: 15 Year
  Sex: Female
  Weight: 50 kg

DRUGS (4)
  1. CYCLOSPORINE [Suspect]
     Indication: LYMPHOHISTIOCYTOSIS
     Dosage: 2 MG/KG, QD
     Route: 042
     Dates: start: 20100119, end: 20100203
  2. RITUXIMAB [Suspect]
     Indication: LYMPHOPROLIFERATIVE DISORDER
     Dosage: 375 MG/M2/ONE WEEK
     Route: 042
     Dates: start: 20100119, end: 20100203
  3. DEXAMETHASONE [Concomitant]
     Indication: LYMPHOHISTIOCYTOSIS
     Dosage: 10 MG/KG, QD
     Route: 042
     Dates: start: 20100119
  4. ETOPOSIDE [Concomitant]
     Indication: LYMPHOHISTIOCYTOSIS
     Dosage: 75 MG/M2, QD
     Dates: start: 20100212

REACTIONS (5)
  - CIRCULATORY COLLAPSE [None]
  - INFLAMMATION [None]
  - LEUKOENCEPHALOPATHY [None]
  - OSMOTIC DEMYELINATION SYNDROME [None]
  - PULMONARY HAEMORRHAGE [None]
